FAERS Safety Report 10364002 (Version 2)
Quarter: 2014Q3

REPORT INFORMATION
  Report Type: Spontaneous
  Country: US (occurrence: US)
  Receive Date: 20140805
  Receipt Date: 20140918
  Transmission Date: 20150326
  Serious: Yes (Other)
  Sender: FDA-Public Use
  Company Number: US-ABBVIE-14K-163-1267072-00

PATIENT
  Sex: Female
  Weight: 96.25 kg

DRUGS (1)
  1. HUMIRA [Suspect]
     Active Substance: ADALIMUMAB
     Indication: COLITIS ULCERATIVE
     Route: 058
     Dates: start: 201404

REACTIONS (7)
  - Eye pruritus [Unknown]
  - Blood triglycerides increased [Unknown]
  - Night sweats [Unknown]
  - Eye irritation [Unknown]
  - Eye inflammation [Unknown]
  - Vision blurred [Unknown]
  - High density lipoprotein decreased [Unknown]

NARRATIVE: CASE EVENT DATE: 2014
